FAERS Safety Report 7955243-7 (Version None)
Quarter: 2011Q4

REPORT INFORMATION
  Report Type: 
  Country: None (occurrence: None)
  Receive Date: 20111202
  Receipt Date: 20111123
  Transmission Date: 20120403
  Serious: Yes (Disabling)
  Sender: FDA-Public Use
  Company Number: CN-GENZYME-CERZ-1002325

PATIENT
  Sex: Male
  Weight: 60 kg

DRUGS (8)
  1. LEVETIRACETAM [Concomitant]
     Indication: EPILEPSY
     Dosage: UNK
     Route: 048
     Dates: start: 20090801
  2. CEREZYME [Suspect]
     Dosage: 15 U/KG, Q2W
     Route: 042
     Dates: start: 20090801, end: 20110301
  3. ETHAMBUTOL HYDROCHLORIDE [Concomitant]
     Indication: TUBERCULOSIS
     Dosage: UNK
     Route: 048
     Dates: start: 20100101
  4. RIFAMPICIN [Concomitant]
     Indication: TUBERCULOSIS
     Dosage: UNK
     Route: 048
     Dates: start: 20100101
  5. CEREZYME [Suspect]
     Dosage: 45 U/KG, Q2W
     Route: 042
     Dates: end: 20090801
  6. CEREZYME [Suspect]
     Indication: GAUCHER'S DISEASE
     Dosage: 20 U/KG, Q2W
     Route: 042
     Dates: start: 20110301
  7. PYRAZINAMIDE [Concomitant]
     Indication: TUBERCULOSIS
     Dosage: UNK
     Route: 048
     Dates: start: 20100101
  8. GLUCOSE ALDEHYDE LACTONE [Concomitant]
     Indication: LIVER DISORDER
     Dosage: UNK
     Route: 048
     Dates: start: 20100101

REACTIONS (2)
  - OSTEONECROSIS [None]
  - OSTEOPOROSIS [None]
